FAERS Safety Report 18096366 (Version 7)
Quarter: 2021Q1

REPORT INFORMATION
  Report Type: Spontaneous
  Country: JP (occurrence: JP)
  Receive Date: 20200731
  Receipt Date: 20210310
  Transmission Date: 20210419
  Serious: Yes (Disabling, Other)
  Sender: FDA-Public Use
  Company Number: JP-AMGEN-JPNSP2020123282

PATIENT
  Age: 64 Year
  Sex: Male
  Weight: 65.7 kg

DRUGS (15)
  1. VECTIBIX [Suspect]
     Active Substance: PANITUMUMAB
     Indication: RECTAL CANCER RECURRENT
     Dosage: 400 MILLIGRAM, Q2WK
     Route: 041
     Dates: start: 20200413, end: 202010
  2. IRINOTECAN HYDROCHLORIDE. [Concomitant]
     Active Substance: IRINOTECAN HYDROCHLORIDE
     Dosage: UNK
     Route: 065
     Dates: start: 202011
  3. LEUCON [ADENINE] [Concomitant]
     Active Substance: ADENINE
     Indication: PROPHYLAXIS
     Dosage: 10 MILLIGRAM, TID
     Route: 048
     Dates: start: 20190627
  4. DECADRON [Concomitant]
     Active Substance: DEXAMETHASONE
     Indication: PROPHYLAXIS
     Dosage: 4 MILLIGRAM, QD
     Route: 048
     Dates: start: 20200414, end: 20200416
  5. GIMERACIL;OTERACIL POTASSIUM;TEGAFUR [Concomitant]
     Active Substance: GIMERACIL\OTERACIL\TEGAFUR
     Dosage: 60 MILLIGRAM, QOD
     Route: 048
     Dates: start: 20200413, end: 202010
  6. KLARICID [CLARITHROMYCIN] [Suspect]
     Active Substance: CLARITHROMYCIN
     Indication: ACNE
     Dosage: 200 MILLIGRAM, BID
     Route: 048
     Dates: start: 20200422
  7. ALLEGRA [Suspect]
     Active Substance: FEXOFENADINE HYDROCHLORIDE
     Indication: ACNE
     Dosage: 60 MILLIGRAM, BID
     Route: 048
     Dates: start: 20200527
  8. IRINOTECAN HYDROCHLORIDE. [Concomitant]
     Active Substance: IRINOTECAN HYDROCHLORIDE
     Dosage: UNK
     Route: 065
     Dates: start: 20200413, end: 202010
  9. GIMERACIL;OTERACIL POTASSIUM;TEGAFUR [Concomitant]
     Active Substance: GIMERACIL\OTERACIL\TEGAFUR
     Indication: COLON CANCER
     Dosage: 60 MILLIGRAM, QOD
     Route: 048
     Dates: start: 20190627
  10. APREPITANT. [Concomitant]
     Active Substance: APREPITANT
     Indication: PROPHYLAXIS
     Dosage: 125 MILLIGRAM, QD
     Route: 048
     Dates: start: 20200413, end: 20200413
  11. VECTIBIX [Suspect]
     Active Substance: PANITUMUMAB
     Dosage: 400 MILLIGRAM, Q2WK
     Route: 041
     Dates: start: 202011
  12. METHYCOBAL [Suspect]
     Active Substance: METHYLCOBALAMIN
     Indication: ACNE
     Dosage: 0.5 MILLIGRAM, TID
     Route: 048
     Dates: start: 20200527
  13. GIMERACIL;OTERACIL POTASSIUM;TEGAFUR [Concomitant]
     Active Substance: GIMERACIL\OTERACIL\TEGAFUR
     Dosage: 60 MILLIGRAM, QOD
     Route: 048
     Dates: start: 202011
  14. POLARAMINE [Suspect]
     Active Substance: DEXCHLORPHENIRAMINE MALEATE
     Indication: ACNE
     Dosage: 2 MILLIGRAM, BID
     Route: 048
     Dates: start: 20200427
  15. APREPITANT. [Concomitant]
     Active Substance: APREPITANT
     Dosage: 80 MILLIGRAM, QD
     Route: 048
     Dates: start: 20200414, end: 20200416

REACTIONS (9)
  - Acne [Unknown]
  - Pruritus [Not Recovered/Not Resolved]
  - Skin fissures [Unknown]
  - Hyperglycaemia [Recovering/Resolving]
  - Pain [Unknown]
  - Tumour marker increased [Unknown]
  - Type 2 diabetes mellitus [Recovering/Resolving]
  - Gait disturbance [Recovered/Resolved]
  - Gastrooesophageal reflux disease [Unknown]

NARRATIVE: CASE EVENT DATE: 2020
